FAERS Safety Report 10211358 (Version 1)
Quarter: 2014Q2

REPORT INFORMATION
  Report Type: Spontaneous
  Country: US (occurrence: None)
  Receive Date: 20140530
  Receipt Date: 20140530
  Transmission Date: 20141212
  Serious: Yes (Disabling)
  Sender: FDA-Public Use
  Company Number: None

PATIENT
  Age: 52 Year
  Sex: Female
  Weight: 102.06 kg

DRUGS (2)
  1. LEVAQUIN [Suspect]
     Indication: PNEUMONIA
  2. LEVAQUIN [Suspect]
     Indication: BRONCHITIS

REACTIONS (30)
  - Arthralgia [None]
  - Pneumonia [None]
  - Disease recurrence [None]
  - Asthenia [None]
  - Fatigue [None]
  - Insomnia [None]
  - Vertigo [None]
  - Musculoskeletal pain [None]
  - Narcolepsy [None]
  - Memory impairment [None]
  - Feeling abnormal [None]
  - Burning sensation [None]
  - Paraesthesia [None]
  - Formication [None]
  - Wrist fracture [None]
  - Fall [None]
  - Dizziness [None]
  - Lethargy [None]
  - Blood pressure decreased [None]
  - Oxygen saturation decreased [None]
  - Bronchitis [None]
  - Crying [None]
  - Palpitations [None]
  - Weight decreased [None]
  - Anaemia [None]
  - White blood cell count increased [None]
  - Renal injury [None]
  - Headache [None]
  - Oral pain [None]
  - Asthenia [None]
